FAERS Safety Report 5610993-2 (Version None)
Quarter: 2008Q1

REPORT INFORMATION
  Report Type: 
  Country: None (occurrence: None)
  Receive Date: 20080201
  Receipt Date: 20080124
  Transmission Date: 20080703
  Serious: Yes (Other)
  Sender: FDA-Public Use
  Company Number: A0703393A

PATIENT
  Age: 19 Year
  Sex: Female

DRUGS (3)
  1. COMBIVIR [Suspect]
     Indication: HIV INFECTION
     Dosage: 2TAB PER DAY
     Route: 048
     Dates: start: 20070815
  2. VIRACEPT [Suspect]
     Indication: HIV INFECTION
     Dosage: 2500MG PER DAY
     Route: 048
     Dates: start: 20070815
  3. VITAMIN AND MINERAL PRENATAL SUPPLEMENT W/ FOLIC ACID CAP [Concomitant]

REACTIONS (8)
  - ANTEPARTUM HAEMORRHAGE [None]
  - CHORIOAMNIONITIS [None]
  - DRUG EXPOSURE DURING PREGNANCY [None]
  - MECONIUM IN AMNIOTIC FLUID [None]
  - PLACENTAL DISORDER [None]
  - PREMATURE SEPARATION OF PLACENTA [None]
  - STILLBIRTH [None]
  - UMBILICAL CORD ABNORMALITY [None]
